FAERS Safety Report 20008277 (Version 1)
Quarter: 2021Q4

REPORT INFORMATION
  Report Type: Spontaneous
  Country: GB (occurrence: GB)
  Receive Date: 20211028
  Receipt Date: 20211028
  Transmission Date: 20220303
  Serious: Yes (Other)
  Sender: FDA-Public Use
  Company Number: GB-ABBVIE-21K-167-4137126-00

PATIENT
  Sex: Male

DRUGS (2)
  1. EPILIM [Suspect]
     Active Substance: VALPROATE SODIUM
     Indication: Product used for unknown indication
     Route: 048
  2. EPILIM [Suspect]
     Active Substance: VALPROATE SODIUM
     Route: 048

REACTIONS (6)
  - Epilepsy [Unknown]
  - Haemorrhage intracranial [Unknown]
  - Facial bones fracture [Unknown]
  - Limb injury [Unknown]
  - Product dose omission issue [Unknown]
  - Amnesia [Unknown]

NARRATIVE: CASE EVENT DATE: 20190311
